FAERS Safety Report 6530488-1 (Version None)
Quarter: 2010Q1

REPORT INFORMATION
  Report Type: 
  Country: None (occurrence: None)
  Receive Date: 20100106
  Receipt Date: 20100106
  Transmission Date: 20100710
  Serious: Yes (Life-Threatening)
  Sender: FDA-Public Use
  Company Number: None

PATIENT
  Age: 57 Year
  Sex: Female
  Weight: 72.1219 kg

DRUGS (1)
  1. LISINOPRIL [Suspect]
     Indication: HYPERTENSION
     Dosage: 1 AND 1/2 DAILY DAILY
     Dates: start: 20090401, end: 20090901

REACTIONS (10)
  - ASTHENIA [None]
  - COUGH [None]
  - DYSPNOEA [None]
  - INFLUENZA LIKE ILLNESS [None]
  - INSOMNIA [None]
  - MALAISE [None]
  - NO THERAPEUTIC RESPONSE [None]
  - PAIN [None]
  - PRESYNCOPE [None]
  - REFUSAL OF TREATMENT BY PATIENT [None]
